FAERS Safety Report 7351559-6 (Version None)
Quarter: 2011Q1

REPORT INFORMATION
  Report Type: 
  Country: None (occurrence: None)
  Receive Date: 20110314
  Receipt Date: 20110308
  Transmission Date: 20110831
  Serious: Yes (Other)
  Sender: FDA-Public Use
  Company Number: US-AMGEN-USASP2011013157

PATIENT
  Sex: Female

DRUGS (2)
  1. PROLIA [Suspect]
     Indication: OSTEOPOROSIS POSTMENOPAUSAL
     Dates: start: 20101012
  2. CALCIUM [Concomitant]

REACTIONS (3)
  - OSTEOPOROTIC FRACTURE [None]
  - CONSTIPATION [None]
  - JAW DISORDER [None]
